FAERS Safety Report 6921183-5 (Version None)
Quarter: 2010Q3

REPORT INFORMATION
  Report Type: 
  Country: None (occurrence: None)
  Receive Date: 20100812
  Receipt Date: 20100803
  Transmission Date: 20110219
  Serious: Yes (Hospitalization)
  Sender: FDA-Public Use
  Company Number: A0786527A

PATIENT
  Age: 70 Year
  Sex: Male

DRUGS (1)
  1. AVANDIA [Suspect]
     Indication: TYPE 2 DIABETES MELLITUS
     Dosage: 4MG PER DAY
     Route: 048
     Dates: start: 20000405, end: 20060330

REACTIONS (6)
  - CARDIAC FAILURE CONGESTIVE [None]
  - CORONARY ARTERY BYPASS [None]
  - CORONARY ARTERY DISEASE [None]
  - HYPERTENSION [None]
  - MULTIPLE INJURIES [None]
  - OBSTRUCTION [None]
